FAERS Safety Report 21719883 (Version 1)
Quarter: 2022Q4

REPORT INFORMATION
  Report Type: Other
  Country: US (occurrence: US)
  Receive Date: 20221213
  Receipt Date: 20221213
  Transmission Date: 20230113
  Serious: Yes (Hospitalization, Other)
  Sender: FDA-Public Use
  Company Number: US-HLS-202105302

PATIENT
  Age: 58 Year
  Sex: Male

DRUGS (2)
  1. CLOZAPINE [Suspect]
     Active Substance: CLOZAPINE
     Indication: Depression
     Route: 048
  2. LITHIUM [Concomitant]
     Active Substance: LITHIUM
     Indication: Depression
     Route: 048

REACTIONS (6)
  - Pyrexia [Recovered/Resolved]
  - Off label use [Unknown]
  - Orthostatic hypotension [Recovered/Resolved]
  - Pericardial effusion [Recovered/Resolved]
  - Tachycardia [Recovered/Resolved]
  - Urinary tract infection [Recovered/Resolved]
